FAERS Safety Report 11920956 (Version 1)
Quarter: 2016Q1

REPORT INFORMATION
  Report Type: Spontaneous
  Country: US (occurrence: US)
  Receive Date: 20160115
  Receipt Date: 20160115
  Transmission Date: 20160526
  Serious: Yes (Other)
  Sender: FDA-Public Use
  Company Number: US-ASTELLAS-2015US045481

PATIENT
  Sex: Female

DRUGS (1)
  1. MYRBETRIQ [Suspect]
     Active Substance: MIRABEGRON
     Indication: BLADDER DISORDER
     Route: 065
     Dates: start: 201505, end: 201512

REACTIONS (4)
  - Halo vision [Recovered/Resolved]
  - Confusional state [Recovered/Resolved]
  - Hypertension [Recovered/Resolved]
  - Dementia [Recovered/Resolved]
